FAERS Safety Report 7234306-8 (Version None)
Quarter: 2011Q1

REPORT INFORMATION
  Report Type: 
  Country: None (occurrence: None)
  Receive Date: 20110119
  Receipt Date: 20110107
  Transmission Date: 20110831
  Serious: No
  Sender: FDA-Public Use
  Company Number: US-B.I. PHARMACEUTICALS,INC./RIDGEFIELD-2011-BP-00867BP

PATIENT
  Age: 93 Year
  Sex: Male

DRUGS (2)
  1. SOLBATALOL [Concomitant]
     Indication: ARRHYTHMIA
  2. PRADAXA [Suspect]
     Indication: ATRIAL FIBRILLATION
     Dosage: 150 MG
     Route: 048

REACTIONS (3)
  - FAECES DISCOLOURED [None]
  - HERNIA [None]
  - DIARRHOEA [None]
